FAERS Safety Report 7829000-6 (Version None)
Quarter: 2011Q4

REPORT INFORMATION
  Report Type: 
  Country: None (occurrence: None)
  Receive Date: 20111020
  Receipt Date: 20111014
  Transmission Date: 20120403
  Serious: Yes (Hospitalization, Disabling, Other)
  Sender: FDA-Public Use
  Company Number: ZA-ELI_LILLY_AND_COMPANY-ZA201108005640

PATIENT
  Sex: Male
  Weight: 129 kg

DRUGS (9)
  1. CORTISONE ACETATE [Concomitant]
  2. SIMVASTATIN [Concomitant]
     Indication: PROPHYLAXIS
     Dosage: 20 MG, UNK
     Route: 048
     Dates: start: 20071115
  3. DIAMICRON [Concomitant]
     Indication: TYPE 2 DIABETES MELLITUS
     Dosage: 80 MG, UNK
     Route: 048
     Dates: start: 20090129
  4. LASIX [Concomitant]
     Indication: BLOOD CHOLESTEROL
  5. ASPIRIN [Concomitant]
     Indication: PROPHYLAXIS
     Dosage: 81 MG, UNK
     Route: 048
     Dates: start: 20071115
  6. BYETTA [Suspect]
     Indication: TYPE 2 DIABETES MELLITUS
     Dosage: 5 UG, UNKNOWN
     Dates: start: 20110329, end: 20110401
  7. BYETTA [Suspect]
     Dosage: 10 UG, BID
     Route: 058
     Dates: start: 20110401, end: 20110613
  8. INSULIN [Concomitant]
  9. GLUCOPHAGE [Concomitant]
     Indication: TYPE 2 DIABETES MELLITUS
     Dosage: 1 G, BID
     Route: 048
     Dates: start: 20070702

REACTIONS (8)
  - MALAISE [None]
  - VOMITING [None]
  - ANAEMIA HAEMOLYTIC AUTOIMMUNE [None]
  - SPLENITIS [None]
  - CHOLELITHIASIS [None]
  - NAUSEA [None]
  - JAUNDICE [None]
  - GENERAL PHYSICAL HEALTH DETERIORATION [None]
